FAERS Safety Report 12176679 (Version 1)
Quarter: 2016Q1

REPORT INFORMATION
  Report Type: Spontaneous
  Country: US (occurrence: US)
  Receive Date: 20160314
  Receipt Date: 20160314
  Transmission Date: 20160526
  Serious: Yes (Other)
  Sender: FDA-Public Use
  Company Number: US-AKORN PHARMACEUTICALS-2015AKN00481

PATIENT
  Sex: Female

DRUGS (5)
  1. MIRENA [Concomitant]
     Active Substance: LEVONORGESTREL
     Dosage: UNK ?G, UNK
     Route: 015
  2. MYORISAN [Suspect]
     Active Substance: ISOTRETINOIN
     Indication: ACNE
     Dosage: 40 MG, 2X/DAY
     Route: 048
     Dates: start: 20150320, end: 201507
  3. ACZONE [Concomitant]
     Active Substance: DAPSONE
     Dosage: UNK UNK, 1X/DAY
     Route: 061
     Dates: start: 20150120
  4. ADAPALENE. [Concomitant]
     Active Substance: ADAPALENE
     Dosage: UNK UNK, 1X/DAY
     Route: 061
     Dates: start: 20150120
  5. AURSTAT [Concomitant]
     Dosage: UNK, 1X/DAY
     Route: 061
     Dates: start: 20150120

REACTIONS (9)
  - Arthralgia [Recovering/Resolving]
  - Dry eye [Recovering/Resolving]
  - Benign intracranial hypertension [Recovering/Resolving]
  - Chapped lips [Recovering/Resolving]
  - Dry skin [Recovering/Resolving]
  - Infection [Unknown]
  - Headache [Recovering/Resolving]
  - Skin hyperpigmentation [Not Recovered/Not Resolved]
  - Infectious mononucleosis [Recovered/Resolved]

NARRATIVE: CASE EVENT DATE: 2015
